FAERS Safety Report 17099114 (Version 2)
Quarter: 2020Q1

REPORT INFORMATION
  Report Type: Report from Study
  Country: None (occurrence: US)
  Receive Date: 20191202
  Receipt Date: 20200131
  Transmission Date: 20200409
  Serious: Yes (Other)
  Sender: FDA-Public Use
  Company Number: US-ABBVIE-19P-163-3175584-00

PATIENT
  Sex: Female

DRUGS (1)
  1. IMBRUVICA [Suspect]
     Active Substance: IBRUTINIB
     Indication: CHRONIC LYMPHOCYTIC LEUKAEMIA
     Route: 048
     Dates: start: 20180401

REACTIONS (6)
  - Depression [Not Recovered/Not Resolved]
  - Hypertension [Unknown]
  - Tooth extraction [Recovering/Resolving]
  - Fall [Unknown]
  - Spinal fracture [Unknown]
  - Product use complaint [Unknown]
